FAERS Safety Report 18495014 (Version 1)
Quarter: 2020Q4

REPORT INFORMATION
  Report Type: Spontaneous
  Country: US (occurrence: US)
  Receive Date: 20201112
  Receipt Date: 20201112
  Transmission Date: 20210114
  Serious: No
  Sender: FDA-Public Use
  Company Number: US-CADILA HEALTHCARE LIMITED-US-ZYDUS-044562

PATIENT
  Age: 80 Year
  Sex: Female

DRUGS (2)
  1. ATORVASTATIN [Suspect]
     Active Substance: ATORVASTATIN
     Indication: PRODUCT USED FOR UNKNOWN INDICATION
     Dosage: 40 MILLIGRAM,FREQUENCY :ONCE DAILY
     Route: 048
     Dates: start: 20191120
  2. AMIODARONE [Suspect]
     Active Substance: AMIODARONE
     Indication: STENT PLACEMENT
     Dosage: 200 MILLIGRAM,FREQUENCY :TWICE DAILY
     Route: 048
     Dates: start: 20191120

REACTIONS (3)
  - Product use in unapproved indication [Unknown]
  - Pruritus [Not Recovered/Not Resolved]
  - Product dose omission issue [Unknown]

NARRATIVE: CASE EVENT DATE: 20191120
